FAERS Safety Report 10793229 (Version 1)
Quarter: 2015Q1

REPORT INFORMATION
  Report Type: Spontaneous
  Country: US (occurrence: None)
  Receive Date: 20150212
  Receipt Date: 20150212
  Transmission Date: 20150721
  Serious: Yes (Hospitalization)
  Sender: FDA-Public Use
  Company Number: None

PATIENT
  Age: 27 Year
  Sex: Female
  Weight: 117.48 kg

DRUGS (1)
  1. LITHIUM CARBONATE TAB 300G ROXANE [Suspect]
     Active Substance: LITHIUM CARBONATE
     Indication: SCHIZOAFFECTIVE DISORDER
     Route: 048
     Dates: start: 20141113, end: 20141121

REACTIONS (4)
  - Motor dysfunction [None]
  - Fall [None]
  - Potentiating drug interaction [None]
  - Antipsychotic drug level above therapeutic [None]

NARRATIVE: CASE EVENT DATE: 20141121
